FAERS Safety Report 20832743 (Version 2)
Quarter: 2022Q2

REPORT INFORMATION
  Report Type: Spontaneous
  Country: US (occurrence: US)
  Receive Date: 20220516
  Receipt Date: 20220603
  Transmission Date: 20220721
  Serious: Yes (Other)
  Sender: FDA-Public Use
  Company Number: US-CELLTRION INC.-2022US006311

PATIENT

DRUGS (3)
  1. INFLECTRA [Suspect]
     Active Substance: INFLIXIMAB-DYYB
     Indication: Crohn^s disease
     Dosage: UNKNOWN DOSE, FIRST INFUSION
     Route: 065
     Dates: start: 202202
  2. INFLECTRA [Suspect]
     Active Substance: INFLIXIMAB-DYYB
     Dosage: UNKNOWN DOSE, SECOND INFUSION
     Route: 065
  3. PREDNISONE [Concomitant]
     Active Substance: PREDNISONE
     Indication: Crohn^s disease
     Dosage: FLUCTUATES 10MG TWICE A DAY/ FLUCTUATES ON BASED ON CROHNS

REACTIONS (5)
  - Crohn^s disease [Recovered/Resolved]
  - Mobility decreased [Recovered/Resolved]
  - Pain [Recovered/Resolved]
  - Drug hypersensitivity [Unknown]
  - Intentional underdose [Unknown]

NARRATIVE: CASE EVENT DATE: 20220201
